FAERS Safety Report 21194338 (Version 11)
Quarter: 2022Q4

REPORT INFORMATION
  Report Type: Report from Study
  Country: US (occurrence: US)
  Receive Date: 20220810
  Receipt Date: 20221222
  Transmission Date: 20230113
  Serious: Yes (Other)
  Sender: FDA-Public Use
  Company Number: US-HBP-2022US026938

PATIENT
  Sex: Male
  Weight: 75.75 kg

DRUGS (5)
  1. TRUSELTIQ [Suspect]
     Active Substance: INFIGRATINIB
     Indication: Bladder cancer
     Dosage: 100 MILLIGRAM, DAILY FOR 21 DAYS
     Route: 048
     Dates: start: 20220610, end: 20220726
  2. TRUSELTIQ [Suspect]
     Active Substance: INFIGRATINIB
     Dosage: 100 MILLIGRAM, DAILY FOR 21 DAYS
     Route: 048
     Dates: start: 202208, end: 202208
  3. TRUSELTIQ [Suspect]
     Active Substance: INFIGRATINIB
     Dosage: 75 MILLIGRAM, DAILY FOR 21 DAYS
     Route: 048
     Dates: start: 2022, end: 20221206
  4. TUMS [Suspect]
     Active Substance: CALCIUM CARBONATE
     Indication: Reflux gastritis
     Dosage: UNK, UNKNOWN
  5. TUMS [Suspect]
     Active Substance: CALCIUM CARBONATE
     Indication: Dyspepsia

REACTIONS (34)
  - Retinal detachment [Not Recovered/Not Resolved]
  - Hyperphosphataemia [Unknown]
  - Malignant neoplasm progression [Unknown]
  - Joint stiffness [Unknown]
  - White blood cell count increased [Unknown]
  - Reflux gastritis [Recovering/Resolving]
  - Oral pain [Not Recovered/Not Resolved]
  - Red blood cell count decreased [Unknown]
  - Regurgitation [Unknown]
  - Off label use [Unknown]
  - Sensitive skin [Recovering/Resolving]
  - Burning sensation [Recovering/Resolving]
  - Throat irritation [Not Recovered/Not Resolved]
  - Oropharyngeal pain [Not Recovered/Not Resolved]
  - Leukonychia [Unknown]
  - Muscle spasms [Not Recovered/Not Resolved]
  - Overdose [Unknown]
  - Purulent discharge [Recovering/Resolving]
  - Sleep disorder due to a general medical condition [Unknown]
  - Vision blurred [Not Recovered/Not Resolved]
  - Haemoglobin decreased [Unknown]
  - Dyspepsia [Unknown]
  - Dry eye [Not Recovered/Not Resolved]
  - Diarrhoea [Unknown]
  - Dry mouth [Unknown]
  - Lacrimation increased [Unknown]
  - Constipation [Unknown]
  - Blood calcium increased [Unknown]
  - Onychalgia [Not Recovered/Not Resolved]
  - Onycholysis [Recovering/Resolving]
  - Stomatitis [Not Recovered/Not Resolved]
  - Blood alkaline phosphatase increased [Not Recovered/Not Resolved]
  - Weight decreased [Not Recovered/Not Resolved]
  - Onychomadesis [Recovering/Resolving]

NARRATIVE: CASE EVENT DATE: 20220101
